FAERS Safety Report 7929137-7 (Version None)
Quarter: 2011Q4

REPORT INFORMATION
  Report Type: 
  Country: None (occurrence: None)
  Receive Date: 20111119
  Receipt Date: 20111107
  Transmission Date: 20120403
  Serious: Yes (Hospitalization)
  Sender: FDA-Public Use
  Company Number: US-ELI_LILLY_AND_COMPANY-US201106002049

PATIENT
  Sex: Female

DRUGS (17)
  1. PLAQUENIL [Concomitant]
     Dosage: 200 MG, BID
  2. FUROSEMIDE [Concomitant]
     Dosage: 20 MG, PRN
  3. CALCIUM [Concomitant]
     Dosage: 600 MG, BID
  4. LYRICA [Concomitant]
     Dosage: 50 MG, QD
  5. METFORMIN HCL [Concomitant]
     Dosage: 5 MG, BID
  6. POTASSIUM CHLORIDE [Concomitant]
     Dosage: 10 MEQ, PRN
  7. FORTEO [Suspect]
     Dosage: 20 UG, 3/W
  8. ACTOS [Concomitant]
     Dosage: 15 MG, QD
  9. NORVASC [Concomitant]
     Dosage: 5 MG, QD
  10. VENTOLIN                                /SCH/ [Concomitant]
     Dosage: UNK, PRN
  11. PREDNISONE TAB [Concomitant]
     Dosage: 2 MG, QD
  12. LISINOPRIL [Concomitant]
     Dosage: 20 MG, QD
  13. MOBIC [Concomitant]
     Dosage: 50 MG, QD
  14. FORTEO [Suspect]
     Dosage: 20 UG, 3/W
     Dates: start: 20110729
  15. FORTEO [Suspect]
     Indication: OSTEOPOROSIS
     Dosage: 20 UG, QD
     Route: 065
     Dates: start: 20110501, end: 20110601
  16. VITAMIN D [Concomitant]
     Dosage: 1.2 MG, WEEKLY (1/W)
  17. SPIRIVA [Concomitant]
     Dosage: 1 DF, QD

REACTIONS (5)
  - DRUG DOSE OMISSION [None]
  - HEADACHE [None]
  - CHRONIC OBSTRUCTIVE PULMONARY DISEASE [None]
  - INTENTIONAL DRUG MISUSE [None]
  - MUSCULAR WEAKNESS [None]
